FAERS Safety Report 9741004 (Version 1)
Quarter: 2013Q4

REPORT INFORMATION
  Report Type: Spontaneous
  Country: US (occurrence: US)
  Receive Date: 20131209
  Receipt Date: 20131209
  Transmission Date: 20140711
  Serious: No
  Sender: FDA-Public Use
  Company Number: US-009507513-1312USA002312

PATIENT
  Sex: Female

DRUGS (1)
  1. JANUVIA [Suspect]
     Dosage: UNK
     Route: 048
     Dates: end: 2013

REACTIONS (4)
  - Weight decreased [Unknown]
  - Adverse drug reaction [Unknown]
  - Decreased appetite [Unknown]
  - Product quality issue [Unknown]
